FAERS Safety Report 8423321-4 (Version None)
Quarter: 2012Q2

REPORT INFORMATION
  Report Type: 
  Country: None (occurrence: None)
  Receive Date: 20120608
  Receipt Date: 20120530
  Transmission Date: 20120825
  Serious: Yes (Hospitalization)
  Sender: FDA-Public Use
  Company Number: ZW-ABBOTT-12P-190-0940874-00

PATIENT
  Age: 53 Year
  Sex: Female

DRUGS (4)
  1. CATEGORY 1 TB TREATMENT [Concomitant]
     Indication: TUBERCULOSIS
     Dates: start: 20110221
  2. LOPINAVIR/RITONAVIR [Suspect]
     Indication: HIV INFECTION
     Route: 048
     Dates: start: 20110307
  3. RALTEGRAVIR [Concomitant]
     Indication: HIV INFECTION
     Dates: start: 20110307
  4. COTRIM [Concomitant]
     Indication: PRODUCT USED FOR UNKNOWN INDICATION
     Dates: start: 20081001

REACTIONS (1)
  - LOWER LIMB FRACTURE [None]
